FAERS Safety Report 19540417 (Version 1)
Quarter: 2021Q3

REPORT INFORMATION
  Report Type: Spontaneous
  Country: US (occurrence: US)
  Receive Date: 20210714
  Receipt Date: 20210714
  Transmission Date: 20211014
  Serious: Yes (Disabling)
  Sender: FDA-Public Use
  Company Number: None

PATIENT
  Age: 69 Year
  Sex: Male

DRUGS (6)
  1. ASPIRIN 81MG [Concomitant]
     Active Substance: ASPIRIN
  2. FOLIC ACID 1MG [Concomitant]
     Active Substance: FOLIC ACID
  3. JANUVIA [Concomitant]
     Active Substance: SITAGLIPTIN PHOSPHATE
  4. LISINOPRIL. [Concomitant]
     Active Substance: LISINOPRIL
  5. METFORMIN [Suspect]
     Active Substance: METFORMIN HYDROCHLORIDE
     Indication: DIABETES MELLITUS
     Route: 048
     Dates: start: 20210517
  6. ZINC GLUCONATE 50MG [Concomitant]

REACTIONS (3)
  - Diarrhoea [None]
  - Haematochezia [None]
  - Flatulence [None]
